FAERS Safety Report 23287829 (Version 1)
Quarter: 2023Q4

REPORT INFORMATION
  Report Type: Spontaneous
  Country: CA (occurrence: CA)
  Receive Date: 20231212
  Receipt Date: 20231212
  Transmission Date: 20240109
  Serious: Yes (Other)
  Sender: FDA-Public Use
  Company Number: CA-GILEAD-2023-0654094

PATIENT
  Age: 69 Year
  Sex: Male
  Weight: 69 kg

DRUGS (13)
  1. BIKTARVY [Suspect]
     Active Substance: BICTEGRAVIR SODIUM\EMTRICITABINE\TENOFOVIR ALAFENAMIDE FUMARATE
     Indication: Antiretroviral therapy
     Dosage: 1 DOSAGE FORM, QD
     Route: 065
  2. PIFELTRO [Suspect]
     Active Substance: DORAVIRINE
     Indication: HIV infection
     Dosage: 100 MG
     Route: 048
  3. WARFARIN [Suspect]
     Active Substance: WARFARIN
     Indication: Atrial flutter
     Dosage: 4.5 MG, QD
     Route: 048
  4. WARFARIN [Suspect]
     Active Substance: WARFARIN
     Dosage: 4 MG, QD
     Route: 048
  5. AMLODIPINE [Concomitant]
     Active Substance: AMLODIPINE BESYLATE
     Indication: Hypertension
     Route: 048
  6. BETAMETHASONE [Concomitant]
     Active Substance: BETAMETHASONE\BETAMETHASONE DIPROPIONATE
     Indication: Psoriasis
     Route: 061
  7. BETAMETHASONE DIPROPIONATE [Concomitant]
     Active Substance: BETAMETHASONE DIPROPIONATE
     Indication: Psoriasis
     Dosage: UNK
     Route: 061
  8. CICLOPIROX [Concomitant]
     Active Substance: CICLOPIROX\TOCOPHEROL
     Indication: Tinea cruris
     Dosage: UNK
     Route: 061
  9. METOPROLOL [Concomitant]
     Active Substance: METOPROLOL
     Indication: Atrial flutter
     Dosage: UNK
     Route: 048
  10. ROSUVASTATIN [Concomitant]
     Active Substance: ROSUVASTATIN
     Indication: Hyperlipidaemia
     Dosage: UNK
     Route: 048
  11. TRAZODONE [Concomitant]
     Active Substance: TRAZODONE HYDROCHLORIDE
     Indication: Insomnia
     Dosage: UNK
     Route: 048
  12. USTEKINUMAB [Concomitant]
     Active Substance: USTEKINUMAB
     Indication: Psoriasis
     Route: 058
  13. VALACYCLOVIR HYDROCHLORIDE [Concomitant]
     Active Substance: VALACYCLOVIR HYDROCHLORIDE
     Indication: Herpes simplex
     Dosage: UNK
     Route: 048

REACTIONS (3)
  - Glomerulosclerosis [Recovered/Resolved]
  - Renal tubular injury [Recovered/Resolved]
  - International normalised ratio increased [Recovered/Resolved]
